FAERS Safety Report 13561106 (Version 1)
Quarter: 2017Q2

REPORT INFORMATION
  Report Type: Spontaneous
  Country: US (occurrence: US)
  Receive Date: 20170518
  Receipt Date: 20170518
  Transmission Date: 20170830
  Serious: Yes (Other)
  Sender: FDA-Public Use
  Company Number: US-AMGEN-USASP2017074002

PATIENT
  Age: 56 Year
  Sex: Female

DRUGS (2)
  1. ENBREL [Suspect]
     Active Substance: ETANERCEPT
     Indication: PSORIATIC ARTHROPATHY
     Dosage: 50 MG, QWK
     Route: 065
  2. ENBREL [Suspect]
     Active Substance: ETANERCEPT
     Indication: PSORIASIS
     Dosage: 50 MG, QWK
     Route: 065

REACTIONS (9)
  - Psoriasis [Unknown]
  - Cardiomegaly [Unknown]
  - Overweight [Unknown]
  - Arthropathy [Unknown]
  - Drug dose omission [Unknown]
  - Arthralgia [Unknown]
  - Weight bearing difficulty [Unknown]
  - Pulmonary hypertension [Unknown]
  - Road traffic accident [Unknown]

NARRATIVE: CASE EVENT DATE: 201605
